FAERS Safety Report 9710901 (Version 1)
Quarter: 2013Q4

REPORT INFORMATION
  Report Type: Spontaneous
  Country: US (occurrence: US)
  Receive Date: 20131126
  Receipt Date: 20131126
  Transmission Date: 20140711
  Serious: No
  Sender: FDA-Public Use
  Company Number: US-BRISTOL-MYERS SQUIBB COMPANY-19026350

PATIENT
  Age: 67 Year
  Sex: Female
  Weight: 90.7 kg

DRUGS (3)
  1. BYETTA [Suspect]
     Dosage: DOSE:2MG
     Dates: start: 20130615
  2. METFORMIN [Concomitant]
  3. GLYBURIDE [Concomitant]

REACTIONS (1)
  - Decreased appetite [Unknown]
